FAERS Safety Report 8225950-X (Version None)
Quarter: 2012Q1

REPORT INFORMATION
  Report Type: 
  Country: None (occurrence: None)
  Receive Date: 20120321
  Receipt Date: 20120319
  Transmission Date: 20120608
  Serious: Yes (Hospitalization, Other)
  Sender: FDA-Public Use
  Company Number: US-PFIZER INC-2012071663

PATIENT
  Sex: Female
  Weight: 149.66 kg

DRUGS (1)
  1. CHANTIX [Suspect]
     Indication: SMOKING CESSATION THERAPY
     Dosage: 0.5 MG, DAILY
     Route: 048
     Dates: start: 20110301, end: 20110926

REACTIONS (6)
  - SUICIDE ATTEMPT [None]
  - PANIC ATTACK [None]
  - MULTIPLE DRUG OVERDOSE INTENTIONAL [None]
  - DEPRESSION [None]
  - THERMAL BURN [None]
  - ANXIETY [None]
